FAERS Safety Report 7044100-9 (Version None)
Quarter: 2010Q4

REPORT INFORMATION
  Report Type: 
  Country: None (occurrence: None)
  Receive Date: 20101013
  Receipt Date: 20101005
  Transmission Date: 20110411
  Serious: Yes (Other)
  Sender: FDA-Public Use
  Company Number: US-PFIZER INC-2010105196

PATIENT
  Sex: Female

DRUGS (1)
  1. XALATAN [Suspect]
     Indication: GLAUCOMA
     Dosage: 1 DROP IN EACH EYE AT NIGHT
     Route: 047
     Dates: start: 20100801

REACTIONS (3)
  - COLITIS [None]
  - DEPRESSED MOOD [None]
  - PAIN IN EXTREMITY [None]
